FAERS Safety Report 5402873-2 (Version None)
Quarter: 2007Q3

REPORT INFORMATION
  Report Type: 
  Country: None (occurrence: None)
  Receive Date: 20070801
  Receipt Date: 20070723
  Transmission Date: 20080115
  Serious: Yes (Hospitalization)
  Sender: FDA-Public Use
  Company Number: US-ABBOTT-07P-163-0375601-00

PATIENT
  Sex: Male
  Weight: 90.8 kg

DRUGS (8)
  1. ZEMPLAR CAPSULES [Suspect]
     Indication: HYPERPARATHYROIDISM
     Route: 048
     Dates: start: 20070501, end: 20070601
  2. METOPROLOL SUCCINATE [Concomitant]
     Indication: HYPERTENSION
  3. MORNIFLUMATE [Concomitant]
     Indication: DRUG USE FOR UNKNOWN INDICATION
  4. LEVOTHYROXINE SODIUM [Concomitant]
     Indication: HYPOTHYROIDISM
  5. LOSARTAN POTASSIUM [Concomitant]
     Indication: DRUG USE FOR UNKNOWN INDICATION
  6. ATORVASTATIN CALCIUM [Concomitant]
     Indication: BLOOD TRIGLYCERIDES INCREASED
  7. LANSOPRAZOLE [Concomitant]
     Indication: GASTROOESOPHAGEAL REFLUX DISEASE
  8. DARBEPOETIN ALFA [Concomitant]
     Indication: RENAL DISORDER

REACTIONS (1)
  - THROMBOCYTOPENIA [None]
